FAERS Safety Report 5365399-0 (Version None)
Quarter: 2007Q2

REPORT INFORMATION
  Report Type: 
  Country: None (occurrence: None)
  Receive Date: 20070621
  Receipt Date: 20070612
  Transmission Date: 20071010
  Serious: Yes (Hospitalization, Other)
  Sender: FDA-Public Use
  Company Number: JP-ELI_LILLY_AND_COMPANY-JP_040503161

PATIENT
  Age: 18 Year
  Sex: Male
  Weight: 70.2 kg

DRUGS (8)
  1. ZYPREXA [Suspect]
     Indication: SCHIZOPHRENIA
     Dosage: 10 MG, DAILY (1/D)
     Route: 048
     Dates: start: 20040319, end: 20040409
  2. RISPERDAL [Concomitant]
     Indication: SCHIZOPHRENIA
     Dosage: 3 MG, 2/D
     Route: 048
     Dates: start: 20040301, end: 20040304
  3. RISPERDAL [Concomitant]
     Dosage: 4 MG, 2/D
     Route: 048
     Dates: start: 20040305, end: 20040311
  4. RISPERDAL [Concomitant]
     Dosage: 6 MG, 2/D
     Route: 048
     Dates: start: 20040312, end: 20040325
  5. RISPERDAL [Concomitant]
     Dosage: 4 MG, 2/D
     Route: 048
     Dates: start: 20040326, end: 20060401
  6. RISPERDAL [Concomitant]
     Dosage: 6 MG, 2/D
     Route: 048
     Dates: start: 20040402
  7. RISPERDAL [Concomitant]
     Dosage: 6 MG, 2/D
     Route: 048
     Dates: start: 20040223, end: 20040229
  8. SILECE [Concomitant]
     Indication: INSOMNIA
     Dosage: 1 MG, DAILY (1/D)
     Route: 048
     Dates: start: 20040223

REACTIONS (6)
  - FAMILIAL HYPERTRIGLYCERIDAEMIA [None]
  - HEPATIC STEATOSIS [None]
  - HIGH DENSITY LIPOPROTEIN DECREASED [None]
  - HYPERTRIGLYCERIDAEMIA [None]
  - INCREASED APPETITE [None]
  - WEIGHT INCREASED [None]
